FAERS Safety Report 14983180 (Version 1)
Quarter: 2018Q2

REPORT INFORMATION
  Report Type: Report from Study
  Country: US (occurrence: US)
  Receive Date: 20180607
  Receipt Date: 20180607
  Transmission Date: 20180711
  Serious: Yes (Other)
  Sender: FDA-Public Use
  Company Number: US-TEVA-2018-US-900701

PATIENT

DRUGS (6)
  1. BUPIVACAINE. [Suspect]
     Active Substance: BUPIVACAINE
     Route: 064
  2. EPINEPHRINE. [Suspect]
     Active Substance: EPINEPHRINE
     Dosage: 1.2 UG/ML
     Route: 064
  3. BUPRENORPHINE. [Suspect]
     Active Substance: BUPRENORPHINE
     Indication: DEPENDENCE
     Route: 064
  4. FENTANYL. [Suspect]
     Active Substance: FENTANYL
     Dosage: 5 UG/ML
     Route: 064
  5. CLONIDINE. [Suspect]
     Active Substance: CLONIDINE
     Dosage: 1.2 UG/ML
     Route: 064
  6. BUPIVACAINE. [Suspect]
     Active Substance: BUPIVACAINE
     Route: 064

REACTIONS (2)
  - Foetal exposure during pregnancy [Unknown]
  - Foetal heart rate deceleration abnormality [Recovered/Resolved]
